FAERS Safety Report 4548597-5 (Version None)
Quarter: 2004Q4

REPORT INFORMATION
  Report Type: 
  Country: None (occurrence: None)
  Receive Date: 20041227
  Receipt Date: 20040917
  Transmission Date: 20050328
  Serious: No
  Sender: FDA-Public Use
  Company Number: 04P-163-0273535-00

PATIENT
  Age: 79 Year
  Sex: Female
  Weight: 74.8435 kg

DRUGS (8)
  1. HUMIRA [Suspect]
     Indication: RHEUMATOID ARTHRITIS
     Dosage: 40 MG 1 IN 1 WK, SUBCUTANEOUS
     Route: 058
     Dates: start: 20030901
  2. PROPRANOLOL HYDROCHLORIDE [Concomitant]
  3. LEVOTHYROXINE SODIUM [Concomitant]
  4. PANTOPRAZOLE [Concomitant]
  5. FOLIC ACID [Concomitant]
  6. UNICAP [Concomitant]
  7. RALOXIFENE HCL [Concomitant]
  8. METHOTREXATE [Concomitant]

REACTIONS (1)
  - BURSITIS [None]
